FAERS Safety Report 7599904-0 (Version None)
Quarter: 2011Q3

REPORT INFORMATION
  Report Type: 
  Country: None (occurrence: None)
  Receive Date: 20110711
  Receipt Date: 20110704
  Transmission Date: 20111222
  Serious: Yes (Death)
  Sender: FDA-Public Use
  Company Number: JP-ASTELLAS-2011JP004265

PATIENT
  Age: 72 Year
  Sex: Female

DRUGS (7)
  1. CILOSTAZOL [Concomitant]
     Route: 065
  2. PROGRAF [Suspect]
     Indication: RHEUMATOID ARTHRITIS
     Dosage: UNK
     Route: 065
     Dates: start: 20060724, end: 20080222
  3. CLOPIDOGREL [Concomitant]
     Route: 065
  4. METHOTREXATE [Concomitant]
     Indication: RHEUMATOID ARTHRITIS
     Route: 065
  5. BUCILLAMINE [Concomitant]
     Indication: RHEUMATOID ARTHRITIS
     Dosage: UNK
     Route: 065
     Dates: start: 20060601
  6. PREDNISOLONE [Concomitant]
     Dosage: UNK
     Route: 065
     Dates: start: 20060601
  7. INFLIXIMAB [Concomitant]
     Dosage: UNK
     Route: 065
     Dates: start: 20060701, end: 20061201

REACTIONS (1)
  - HEPATITIS FULMINANT [None]
